FAERS Safety Report 23281725 (Version 9)
Quarter: 2025Q1

REPORT INFORMATION
  Report Type: Report from Study
  Country: US (occurrence: US)
  Receive Date: 20231211
  Receipt Date: 20250221
  Transmission Date: 20250409
  Serious: Yes (Hospitalization, Other)
  Sender: UCB
  Company Number: US-UCBSA-2023057900

PATIENT
  Age: 13 Year
  Sex: Female

DRUGS (10)
  1. FINTEPLA [Suspect]
     Active Substance: FENFLURAMINE
     Indication: Epilepsy
     Dosage: 5 MILLILITER, 2X/DAY (BID)
     Route: 048
     Dates: start: 20201229
  2. FINTEPLA [Suspect]
     Active Substance: FENFLURAMINE
     Indication: Severe myoclonic epilepsy of infancy
     Dosage: 5 MILLILITER, 2X/DAY (BID)
     Route: 048
  3. FINTEPLA [Suspect]
     Active Substance: FENFLURAMINE
     Dosage: 5.9 MILLILITER, 2X/DAY (BID)
     Route: 048
  4. FINTEPLA [Suspect]
     Active Substance: FENFLURAMINE
     Dosage: 3.2 MILLILITER, 2X/DAY (BID)
  5. FINTEPLA [Suspect]
     Active Substance: FENFLURAMINE
     Dosage: 5.9 MILLILITER, 2X/DAY (BID)
  6. FINTEPLA [Suspect]
     Active Substance: FENFLURAMINE
     Dosage: 4.52 MILLILITER, 2X/DAY (BID)
  7. FINTEPLA [Suspect]
     Active Substance: FENFLURAMINE
     Dosage: 3.2 MILLILITER, 2X/DAY (BID)
  8. EPIDIOLEX [Suspect]
     Active Substance: CANNABIDIOL
     Indication: Product used for unknown indication
  9. TOPAMAX [Suspect]
     Active Substance: TOPIRAMATE
     Indication: Product used for unknown indication
  10. DEPAKOTE [Suspect]
     Active Substance: DIVALPROEX SODIUM
     Indication: Product used for unknown indication

REACTIONS (4)
  - Seizure cluster [Recovering/Resolving]
  - Hospitalisation [Recovered/Resolved]
  - Seizure [Recovered/Resolved]
  - Wrong technique in product usage process [Unknown]

NARRATIVE: CASE EVENT DATE: 20231204
